FAERS Safety Report 10808622 (Version 1)
Quarter: 2015Q1

REPORT INFORMATION
  Report Type: Report from Study
  Country: US (occurrence: US)
  Receive Date: 20150217
  Receipt Date: 20150217
  Transmission Date: 20150721
  Serious: No
  Sender: FDA-Public Use
  Company Number: US-ABBVIE-14K-163-1268710-00

PATIENT
  Age: 61 Year
  Sex: Male
  Weight: 73.55 kg

DRUGS (5)
  1. COLESTID [Concomitant]
     Active Substance: COLESTIPOL HYDROCHLORIDE
     Indication: COLITIS ULCERATIVE
  2. LIALDA [Concomitant]
     Active Substance: MESALAMINE
     Indication: COLITIS ULCERATIVE
  3. HUMIRA [Suspect]
     Active Substance: ADALIMUMAB
     Indication: COLITIS ULCERATIVE
     Dates: start: 20140801, end: 20140801
  4. HUMIRA [Suspect]
     Active Substance: ADALIMUMAB
  5. DOXYZOSYN METHYL [Concomitant]
     Indication: URINARY TRACT DISORDER

REACTIONS (1)
  - Injection site haemorrhage [Recovered/Resolved]

NARRATIVE: CASE EVENT DATE: 20140801
